FAERS Safety Report 22100333 (Version 1)
Quarter: 2023Q1

REPORT INFORMATION
  Report Type: Report from Study
  Country: US (occurrence: US)
  Receive Date: 20230315
  Receipt Date: 20230315
  Transmission Date: 20230417
  Serious: Yes (Other)
  Sender: FDA-Public Use
  Company Number: US-ABBVIE-4339398

PATIENT
  Age: 56 Year
  Sex: Female

DRUGS (1)
  1. RINVOQ [Suspect]
     Active Substance: UPADACITINIB
     Indication: Psoriasis
     Route: 048
     Dates: start: 20230102, end: 20230210

REACTIONS (7)
  - Staphylococcal infection [Not Recovered/Not Resolved]
  - Lymphadenopathy [Unknown]
  - Folliculitis [Not Recovered/Not Resolved]
  - Chest pain [Unknown]
  - Dyspnoea [Unknown]
  - Vancomycin infusion reaction [Unknown]
  - Swelling [Unknown]

NARRATIVE: CASE EVENT DATE: 20230210
